FAERS Safety Report 7638342-9 (Version None)
Quarter: 2011Q3

REPORT INFORMATION
  Report Type: 
  Country: None (occurrence: None)
  Receive Date: 20110720
  Receipt Date: 20110705
  Transmission Date: 20111222
  Serious: No
  Sender: FDA-Public Use
  Company Number: DE-1186738

PATIENT
  Age: 80 Year
  Sex: Male

DRUGS (8)
  1. ISOSORBIDE DINITRATE [Concomitant]
  2. LISODURA [Concomitant]
  3. SIMVASTATIN [Concomitant]
  4. FLUORESCITE [Suspect]
     Indication: ANGIOGRAM RETINA
     Dosage: (INTRAVENOUS BOLUS)
     Route: 040
     Dates: start: 20110517
  5. GLIBEN HEXAL [Concomitant]
  6. METOPROLOL SUCCINATE [Concomitant]
  7. ASPIRIN [Concomitant]
  8. ALFUZOSIN HCL [Concomitant]

REACTIONS (2)
  - DRUG HYPERSENSITIVITY [None]
  - NAUSEA [None]
